FAERS Safety Report 25981059 (Version 1)
Quarter: 2025Q4

REPORT INFORMATION
  Report Type: Spontaneous
  Country: US (occurrence: None)
  Receive Date: 20251030
  Receipt Date: 20251030
  Transmission Date: 20260117
  Serious: Yes (unspecified)
  Sender: FDA-CTU
  Company Number: None

PATIENT
  Age: 29 Year
  Sex: Female
  Weight: 105.75 kg

DRUGS (2)
  1. CIPROFLOXACIN [Suspect]
     Active Substance: CIPROFLOXACIN
  2. METRONIDAZOLE [Suspect]
     Active Substance: METRONIDAZOLE

REACTIONS (6)
  - Headache [None]
  - Hypoaesthesia [None]
  - Paraesthesia [None]
  - Chest discomfort [None]
  - Visual impairment [None]
  - Product communication issue [None]

NARRATIVE: CASE EVENT DATE: 20250924
